FAERS Safety Report 11158871 (Version 2)
Quarter: 2017Q1

REPORT INFORMATION
  Report Type: Spontaneous
  Country: US (occurrence: US)
  Receive Date: 20150603
  Receipt Date: 20170104
  Transmission Date: 20170428
  Serious: Yes (Hospitalization)
  Sender: FDA-Public Use
  Company Number: US-SA-2015SA074818

PATIENT
  Age: 61 Year
  Sex: Female
  Weight: 110 kg

DRUGS (11)
  1. FLUDARA [Suspect]
     Active Substance: FLUDARABINE PHOSPHATE
     Indication: CHRONIC LYMPHOCYTIC LEUKAEMIA
     Dosage: 1-3 OF 28 DAY CYCLE
     Route: 042
     Dates: start: 20130507, end: 20130728
  2. CYTOXAN [Concomitant]
     Active Substance: CYCLOPHOSPHAMIDE
     Indication: CHRONIC LYMPHOCYTIC LEUKAEMIA
     Dosage: DAY 1-3 OF 28 DAY CYCLE
     Route: 042
     Dates: start: 20130424, end: 20130824
  3. DECADRON [Concomitant]
     Active Substance: DEXAMETHASONE
     Dates: start: 20130620, end: 20130620
  4. ZOFRAN [Concomitant]
     Active Substance: ONDANSETRON HYDROCHLORIDE
     Dosage: SOLUTION
     Route: 042
     Dates: start: 20130621, end: 20130621
  5. FLUDARA [Suspect]
     Active Substance: FLUDARABINE PHOSPHATE
     Indication: CHRONIC LYMPHOCYTIC LEUKAEMIA
     Dosage: 1-3 OF 28 DAY CYCLE
     Route: 042
     Dates: start: 20130729, end: 20130828
  6. NEULASTA [Concomitant]
     Active Substance: PEGFILGRASTIM
     Route: 058
     Dates: start: 20130622, end: 20130622
  7. DECADRON [Concomitant]
     Active Substance: DEXAMETHASONE
     Dates: start: 20130621, end: 20130621
  8. RITUXAN [Concomitant]
     Active Substance: RITUXIMAB
     Indication: CHRONIC LYMPHOCYTIC LEUKAEMIA
     Dosage: DAY 1 OF 28 DAY CYCLE
     Route: 042
     Dates: start: 20130424, end: 20130824
  9. CYTOXAN [Concomitant]
     Active Substance: CYCLOPHOSPHAMIDE
     Indication: CHRONIC LYMPHOCYTIC LEUKAEMIA
     Route: 042
     Dates: start: 20130620, end: 20130620
  10. ZOFRAN [Concomitant]
     Active Substance: ONDANSETRON HYDROCHLORIDE
     Dosage: SOLUTION
     Route: 042
     Dates: start: 20130620, end: 20130620
  11. CYTOXAN [Concomitant]
     Active Substance: CYCLOPHOSPHAMIDE
     Indication: CHRONIC LYMPHOCYTIC LEUKAEMIA
     Route: 042
     Dates: start: 20130621, end: 20130621

REACTIONS (2)
  - Failure to thrive [Unknown]
  - Febrile neutropenia [Unknown]

NARRATIVE: CASE EVENT DATE: 20130620
